FAERS Safety Report 8655223 (Version 4)
Quarter: 2013Q2

REPORT INFORMATION
  Report Type: Report from Study
  Country: US (occurrence: US)
  Receive Date: 20120709
  Receipt Date: 20130408
  Transmission Date: 20140414
  Serious: Yes (Hospitalization, Other)
  Sender: FDA-Public Use
  Company Number: US-ACTELION-A-NJ2012-68119

PATIENT
  Age: 45 Year
  Sex: Female

DRUGS (3)
  1. TRACLEER [Suspect]
     Indication: PULMONARY ARTERIAL HYPERTENSION
     Dosage: UNK
     Route: 048
  2. ASPIRIN [Concomitant]
  3. LASIX [Concomitant]

REACTIONS (13)
  - Pulmonary oedema [Unknown]
  - Dyspnoea [Unknown]
  - Insomnia [Unknown]
  - Cough [Unknown]
  - Wheezing [Unknown]
  - Renal failure [Recovered/Resolved]
  - Blood potassium abnormal [Unknown]
  - Blood potassium decreased [Unknown]
  - Fluid retention [Unknown]
  - Oedema peripheral [Unknown]
  - Oedema [Unknown]
  - Asthenia [Not Recovered/Not Resolved]
  - Loss of consciousness [Unknown]
